FAERS Safety Report 25832712 (Version 1)
Quarter: 2025Q3

REPORT INFORMATION
  Report Type: Spontaneous
  Country: US (occurrence: US)
  Receive Date: 20250922
  Receipt Date: 20250922
  Transmission Date: 20251020
  Serious: Yes (Other)
  Sender: NOVO NORDISK
  Company Number: US-NOVOPROD-1512330

PATIENT
  Age: 70 Year
  Sex: Female

DRUGS (1)
  1. TRESIBA [Suspect]
     Active Substance: INSULIN DEGLUDEC
     Indication: Type 2 diabetes mellitus
     Dosage: 60 IU, BID
     Dates: start: 20250808, end: 20250827

REACTIONS (8)
  - Cardiac flutter [Recovering/Resolving]
  - Asthma [Recovering/Resolving]
  - Dysphonia [Recovering/Resolving]
  - Blood ketone body increased [Not Recovered/Not Resolved]
  - Emergency care [Unknown]
  - Headache [Recovering/Resolving]
  - Drug hypersensitivity [Unknown]
  - Off label use [Unknown]

NARRATIVE: CASE EVENT DATE: 20250801
